FAERS Safety Report 24238940 (Version 1)
Quarter: 2024Q3

REPORT INFORMATION
  Report Type: Spontaneous
  Country: US (occurrence: None)
  Receive Date: 20240821
  Receipt Date: 20240821
  Transmission Date: 20241017
  Serious: No
  Sender: Public
  Company Number: None

PATIENT
  Age: 21 Year
  Sex: Female
  Weight: 119.25 kg

DRUGS (1)
  1. MONISTAT 3 [Suspect]
     Active Substance: MICONAZOLE NITRATE
     Indication: Fungal infection
     Dosage: OTHER QUANTITY : 1 INJECTION(S);?FREQUENCY : AT BEDTIME;?
     Route: 067
     Dates: start: 20240821, end: 20240821

REACTIONS (4)
  - Application site pain [None]
  - Screaming [None]
  - Pain [None]
  - Bloody discharge [None]

NARRATIVE: CASE EVENT DATE: 20240821
